FAERS Safety Report 8514472-4 (Version None)
Quarter: 2012Q3

REPORT INFORMATION
  Report Type: 
  Country: None (occurrence: None)
  Receive Date: 20120717
  Receipt Date: 20120712
  Transmission Date: 20120928
  Serious: Yes (Other)
  Sender: FDA-Public Use
  Company Number: US-PFIZER INC-2012137131

PATIENT
  Sex: Female

DRUGS (21)
  1. NORVASC [Suspect]
     Indication: HYPERTENSION
     Dosage: 5 MG, DAILY
  2. CORDARONE [Suspect]
     Dosage: UNK
     Route: 048
     Dates: start: 20040101
  3. LIPITOR [Suspect]
     Indication: BLOOD CHOLESTEROL INCREASED
     Dosage: 80 MG, DAILY AT BEDTIME
     Dates: start: 19940101
  4. TOPROL-XL [Suspect]
     Dosage: 150 MG, DAILY
  5. NITROGLYCERIN [Concomitant]
     Dosage: 0.2 MG FROM 6 PM IN THE EVENING TILL 6 AM IN THE MORNING
     Route: 062
  6. LOVAZA [Concomitant]
     Indication: OSTEOPENIA
  7. TOPROL-XL [Suspect]
     Dosage: 50 MG, DAILY
     Dates: start: 19941003
  8. POTASSIUM CHLORIDE [Concomitant]
     Dosage: DAILY
  9. VITAMIN B-COMPLEX WITH VITAMIN C [Concomitant]
     Dosage: ONE TABLET DAILY
     Route: 048
  10. VITAMIN D [Suspect]
     Indication: VITAMIN SUPPLEMENTATION
     Dosage: 2000 IU,DAILY
     Route: 048
  11. PLAVIX [Concomitant]
     Indication: ANTICOAGULANT THERAPY
     Dosage: 75 MG, DAILY IN THE MORNING
  12. LASIX [Concomitant]
     Dosage: 20 MG, DAILY
  13. FLONASE [Concomitant]
     Dosage: 50 UG, 2X/DAY IN EACH NOSTIRL
  14. NITROSTAT [Concomitant]
     Dosage: 0.4 MG, DAILY
  15. ASPIRIN [Concomitant]
     Indication: FLUSHING
     Dosage: 81 MG, DAILY
  16. TOPROL-XL [Suspect]
     Dosage: 100 MG, DAILY
  17. LOVAZA [Concomitant]
     Indication: OSTEOARTHRITIS
     Dosage: 1000 MG, 2X/DAY
  18. TOPROL-XL [Suspect]
     Dosage: DAILY
  19. CORDARONE [Suspect]
     Indication: ATRIAL FIBRILLATION
     Dosage: 200 MG, DAILY
     Route: 048
  20. OPTIVE [Concomitant]
     Indication: DRY EYE
     Dosage: AS NEEDED
  21. CALCIUM CARBONATE [Concomitant]
     Indication: OSTEOPENIA
     Dosage: 500 MG/200IU,3X/DAY

REACTIONS (9)
  - FATIGUE [None]
  - HIP ARTHROPLASTY [None]
  - SWELLING [None]
  - HYPOTHYROIDISM [None]
  - BLOOD COUNT ABNORMAL [None]
  - VITAMIN D DECREASED [None]
  - PAIN [None]
  - WEIGHT INCREASED [None]
  - GLAUCOMA [None]
